FAERS Safety Report 9654876 (Version 2)
Quarter: 2013Q4

REPORT INFORMATION
  Report Type: Spontaneous
  Country: US (occurrence: US)
  Receive Date: 20131029
  Receipt Date: 20131107
  Transmission Date: 20140711
  Serious: Yes (Other)
  Sender: FDA-Public Use
  Company Number: US-BAXTER-2013BAX042268

PATIENT
  Age: 44 Year
  Sex: Male

DRUGS (2)
  1. ADVATE [Suspect]
     Indication: HAEMOPHILIA
     Route: 042
  2. ADVATE [Suspect]
     Indication: PROPHYLAXIS

REACTIONS (2)
  - Hepatic failure [Recovered/Resolved]
  - Nasal oedema [Recovered/Resolved]
